FAERS Safety Report 4771210-9 (Version None)
Quarter: 2005Q3

REPORT INFORMATION
  Report Type: 
  Country: None (occurrence: None)
  Receive Date: 20050914
  Receipt Date: 20050831
  Transmission Date: 20060218
  Serious: Yes (Other)
  Sender: FDA-Public Use
  Company Number: USA0507104080

PATIENT
  Age: 40 Year
  Sex: Female
  Weight: 80 kg

DRUGS (10)
  1. CYMBALTA [Suspect]
     Indication: FIBROMYALGIA
     Dosage: 60 MG DAY
     Dates: start: 20050401
  2. SERZONE [Concomitant]
  3. TOPAMAX [Concomitant]
  4. KLONOPIN [Concomitant]
  5. FLEXERIL [Concomitant]
  6. ZOVIRAX /GRC/ACICLOVIR) [Concomitant]
  7. MULTIVITAMINS NOS (MULTIVITAMINS NOS) [Concomitant]
  8. PSEUDOEPHEDRINE HCL [Concomitant]
  9. MICRO K (POTASSIUM CHLORIDE) [Concomitant]
  10. FLAXSEED OIL [Concomitant]

REACTIONS (2)
  - ALANINE AMINOTRANSFERASE INCREASED [None]
  - ASPARTATE AMINOTRANSFERASE INCREASED [None]
